FAERS Safety Report 9390151 (Version 1)
Quarter: 2013Q3

REPORT INFORMATION
  Report Type: Spontaneous
  Country: US (occurrence: US)
  Receive Date: 20130708
  Receipt Date: 20130708
  Transmission Date: 20140515
  Serious: No
  Sender: FDA-Public Use
  Company Number: US-AMGEN-USASP2013042997

PATIENT
  Age: 56 Year
  Sex: Female

DRUGS (3)
  1. ENBREL [Suspect]
     Indication: PRODUCT USED FOR UNKNOWN INDICATION
     Dosage: 25 MG
     Route: 065
  2. PREDNISONE [Concomitant]
     Dosage: 20 MG, UNK
  3. TYLENOL                            /00020001/ [Concomitant]
     Dosage: 325 MG, UNK

REACTIONS (6)
  - Hypoaesthesia [Unknown]
  - Weight fluctuation [Unknown]
  - Breast tenderness [Unknown]
  - Sinusitis [Unknown]
  - Vulvovaginal mycotic infection [Unknown]
  - Paraesthesia [Unknown]
